FAERS Safety Report 5794057-3 (Version None)
Quarter: 2008Q2

REPORT INFORMATION
  Report Type: 
  Country: None (occurrence: None)
  Receive Date: 20080627
  Receipt Date: 20080617
  Transmission Date: 20081010
  Serious: Yes (Other)
  Sender: FDA-Public Use
  Company Number: US-PFIZER INC-2008042005

PATIENT
  Sex: Female
  Weight: 62.6 kg

DRUGS (3)
  1. CHANTIX [Suspect]
     Indication: SMOKING CESSATION THERAPY
     Dates: start: 20080101, end: 20080101
  2. PAXIL [Concomitant]
     Indication: POST-TRAUMATIC STRESS DISORDER
  3. PAXIL [Concomitant]
     Indication: DEPRESSION

REACTIONS (5)
  - ACTIVITIES OF DAILY LIVING IMPAIRED [None]
  - DEPRESSION [None]
  - FLAT AFFECT [None]
  - NIGHTMARE [None]
  - SUICIDAL IDEATION [None]
